FAERS Safety Report 10589969 (Version 1)
Quarter: 2014Q4

REPORT INFORMATION
  Report Type: Spontaneous
  Country: US (occurrence: US)
  Receive Date: 20141118
  Receipt Date: 20141118
  Transmission Date: 20150529
  Serious: Yes (Hospitalization, Other)
  Sender: FDA-Public Use
  Company Number: US-ELI_LILLY_AND_COMPANY-US201411004261

PATIENT
  Sex: Female

DRUGS (2)
  1. HUMALOG [Suspect]
     Active Substance: INSULIN LISPRO
     Indication: TYPE 2 DIABETES MELLITUS
     Dosage: UNK
     Route: 065
  2. LANTUS [Concomitant]
     Active Substance: INSULIN GLARGINE

REACTIONS (12)
  - Pyrexia [Unknown]
  - Blood pressure abnormal [Unknown]
  - Vaccination complication [Unknown]
  - Fall [Recovered/Resolved]
  - Incorrect dose administered [Unknown]
  - Contusion [Unknown]
  - Loss of consciousness [Unknown]
  - Chills [Unknown]
  - Tremor [Unknown]
  - Blood glucose increased [Unknown]
  - Vaccination complication [Unknown]
  - Asthma [Unknown]

NARRATIVE: CASE EVENT DATE: 2013
